FAERS Safety Report 17835848 (Version 1)
Quarter: 2020Q2

REPORT INFORMATION
  Report Type: Report from Study
  Country: TH (occurrence: TH)
  Receive Date: 20200528
  Receipt Date: 20200528
  Transmission Date: 20200714
  Serious: Yes (Death, Other)
  Sender: FDA-Public Use
  Company Number: TH-SEATTLE GENETICS-2019SGN03490

PATIENT
  Age: 50 Year
  Sex: Male

DRUGS (1)
  1. BRENTUXIMAB VEDOTIN [Suspect]
     Active Substance: BRENTUXIMAB VEDOTIN
     Indication: ANAPLASTIC LARGE CELL LYMPHOMA T- AND NULL-CELL TYPES
     Dosage: 100 MILLIGRAM, Q3WEEKS
     Route: 042
     Dates: start: 20190911

REACTIONS (3)
  - Pneumonia [Unknown]
  - Pyrexia [Unknown]
  - Anaplastic large cell lymphoma T- and null-cell types [Fatal]

NARRATIVE: CASE EVENT DATE: 20200516
